FAERS Safety Report 9016750 (Version 3)
Quarter: 2013Q4

REPORT INFORMATION
  Report Type: Spontaneous
  Country: US (occurrence: US)
  Receive Date: 20130116
  Receipt Date: 20131105
  Transmission Date: 20140711
  Serious: No
  Sender: FDA-Public Use
  Company Number: US-PFIZER INC-2013018406

PATIENT
  Age: 54 Year
  Sex: Female

DRUGS (5)
  1. LYRICA [Suspect]
     Dosage: 100 MG, 4X/DAY
     Route: 048
  2. NEURONTIN [Suspect]
     Dosage: 1200 MG, 3X/DAY
     Route: 048
  3. SAVELLA [Concomitant]
     Dosage: 100 MG, 2X/DAY
     Route: 048
  4. IMITREX [Concomitant]
     Dosage: 100 MG, 1 TABLET ORALLY AT ONSET AND MAY REPEAT IN X 2 HOURS, AS NEEDED
  5. AMITRIPTYLINE HYDROCHLORIDE [Concomitant]
     Dosage: 50 MG, 1X/DAY (AT BEDTIME)
     Route: 048

REACTIONS (1)
  - Feeling abnormal [Unknown]
